FAERS Safety Report 10697284 (Version 1)
Quarter: 2015Q1

REPORT INFORMATION
  Report Type: Spontaneous
  Country: US (occurrence: None)
  Receive Date: 20150106
  Receipt Date: 20150106
  Transmission Date: 20150721
  Serious: Yes (Hospitalization)
  Sender: FDA-Public Use
  Company Number: US-H14001-14-01881

PATIENT
  Age: 43 Year
  Sex: Female

DRUGS (2)
  1. NARCOTICS [Suspect]
     Active Substance: UNSPECIFIED INGREDIENT
     Indication: BACK PAIN
  2. GABAPENTIN. [Suspect]
     Active Substance: GABAPENTIN
     Indication: PRODUCT USED FOR UNKNOWN INDICATION

REACTIONS (2)
  - Diffuse alveolar damage [None]
  - Acute respiratory failure [None]

NARRATIVE: CASE EVENT DATE: 201312
